FAERS Safety Report 23273533 (Version 4)
Quarter: 2024Q1

REPORT INFORMATION
  Report Type: Spontaneous
  Country: US (occurrence: US)
  Receive Date: 20231207
  Receipt Date: 20240112
  Transmission Date: 20240409
  Serious: No
  Sender: FDA-Public Use
  Company Number: US-PFIZER INC-PV202300124117

PATIENT
  Age: 78 Year
  Sex: Male
  Weight: 88.435 kg

DRUGS (6)
  1. BOSULIF [Suspect]
     Active Substance: BOSUTINIB MONOHYDRATE
     Indication: Chronic myeloid leukaemia
     Dosage: 400 MG
     Route: 048
     Dates: start: 202209
  2. BOSULIF [Suspect]
     Active Substance: BOSUTINIB MONOHYDRATE
     Dosage: 400 MG, DAILY (100 MG TABLETS, 4 TABLETS DAILY)
     Route: 048
  3. BOSULIF [Suspect]
     Active Substance: BOSUTINIB MONOHYDRATE
     Dosage: 400 MG, 1X/DAY (4 TABLETS OF 100 MG (400 MG TOTAL) QD)
     Route: 048
  4. BOSULIF [Suspect]
     Active Substance: BOSUTINIB MONOHYDRATE
     Dosage: 400 MG, CYCLIC, ONCE DAILY ON DAYS 1 THROUGH 28. A CYCLE IS EVERY 28 DAYS
     Route: 048
  5. BOSULIF [Suspect]
     Active Substance: BOSUTINIB MONOHYDRATE
     Dosage: 400 MG, DAILY
     Route: 048
  6. BOSULIF [Suspect]
     Active Substance: BOSUTINIB MONOHYDRATE
     Dosage: 400 MG, DAILY, 4 TAB DAILY WITH FOOD SWALLOW WHOLE/400 MG FLAT DOSE ONCE DAILY ON DAYS 1 THROUGH 28
     Route: 048

REACTIONS (6)
  - Product dispensing error [Unknown]
  - Product dose omission issue [Unknown]
  - Productive cough [Unknown]
  - Leukocytosis [Unknown]
  - Neutrophil count increased [Unknown]
  - Anaemia [Unknown]
